FAERS Safety Report 9174992 (Version 1)
Quarter: 2013Q1

REPORT INFORMATION
  Report Type: Spontaneous
  Country: BR (occurrence: BR)
  Receive Date: 20130320
  Receipt Date: 20130320
  Transmission Date: 20140127
  Serious: Yes (Other)
  Sender: FDA-Public Use
  Company Number: BR-PFIZER INC-2013088772

PATIENT
  Age: 60 Year
  Sex: Female
  Weight: 84 kg

DRUGS (3)
  1. LYRICA [Suspect]
     Indication: PAIN IN EXTREMITY
     Dosage: 75 MG (ONE CAPSULE), 2X/DAY
     Route: 048
     Dates: start: 20130314
  2. CLORANA [Concomitant]
     Indication: HYPERTENSION
     Dosage: 1 DF, 1X/DAY
     Dates: start: 2011
  3. EUTHYROX [Concomitant]
     Indication: HYPOTHYROIDISM
     Dosage: 1 DF, 1X/DAY
     Dates: start: 2010

REACTIONS (5)
  - Dizziness [Recovering/Resolving]
  - Activities of daily living impaired [Unknown]
  - Amnesia [Unknown]
  - Malaise [Not Recovered/Not Resolved]
  - Visual impairment [Not Recovered/Not Resolved]
